FAERS Safety Report 20716719 (Version 13)
Quarter: 2023Q4

REPORT INFORMATION
  Report Type: Spontaneous
  Country: JP (occurrence: JP)
  Receive Date: 20220416
  Receipt Date: 20231215
  Transmission Date: 20240110
  Serious: Yes (Hospitalization, Other)
  Sender: FDA-Public Use
  Company Number: JP-AMGEN-JPNSP2022010375

PATIENT
  Sex: Female

DRUGS (8)
  1. BLINCYTO [Suspect]
     Active Substance: BLINATUMOMAB
     Indication: Acute lymphocytic leukaemia
     Dosage: UNK, DRIP INFUSION
     Route: 041
     Dates: start: 20220117, end: 20220118
  2. BLINCYTO [Suspect]
     Active Substance: BLINATUMOMAB
     Dosage: UNK, DRIP INFUSION
     Route: 041
     Dates: start: 20220125, end: 2022
  3. BLINCYTO [Suspect]
     Active Substance: BLINATUMOMAB
     Dosage: UNK, DRIP INFUSION (SECOND CYCLE), BLINCYTO WAS ADMINISTERED AT A LOW DOSE FOR ONE WEEK AS IN CYCLE
     Route: 042
     Dates: start: 20220330, end: 2022
  4. BLINCYTO [Suspect]
     Active Substance: BLINATUMOMAB
     Dosage: 6.5 MICROGRAM, QD (CYCLE 3)
     Route: 042
     Dates: start: 2022, end: 2022
  5. BLINCYTO [Suspect]
     Active Substance: BLINATUMOMAB
     Dosage: UNK, DOSE INCREASED (CYCLE 3)
     Route: 042
     Dates: start: 2022, end: 2022
  6. BLINCYTO [Suspect]
     Active Substance: BLINATUMOMAB
     Dosage: 17.5 MICROGRAM, QD (DOSE DECREASED, CYCLE 3), DOSING DAYS OF BLINCYTO WAS ALSO ADJUSTED TO 22 DAYS/C
     Route: 042
     Dates: start: 2022, end: 2022
  7. BLINCYTO [Suspect]
     Active Substance: BLINATUMOMAB
     Dosage: UNK, 5TH CYCLE (THERAPY HAD BEEN PERFORMED WITH 22-DAY ADMINISTRATION)
     Route: 042
     Dates: start: 2022, end: 2022
  8. ONCOVIN [Concomitant]
     Active Substance: VINCRISTINE SULFATE
     Dosage: UNK
     Route: 065

REACTIONS (15)
  - Sudden hearing loss [Recovered/Resolved]
  - Enteritis infectious [Recovered/Resolved]
  - Acute lymphocytic leukaemia recurrent [Unknown]
  - Infection [Recovered/Resolved]
  - Fall [Unknown]
  - Face injury [Unknown]
  - Off label use [Unknown]
  - CD19 lymphocytes decreased [Not Recovered/Not Resolved]
  - Arthralgia [Unknown]
  - Dizziness [Unknown]
  - Dysgraphia [Recovered/Resolved]
  - Immunoglobulins decreased [Not Recovered/Not Resolved]
  - Hypoaesthesia [Unknown]
  - Pyrexia [Unknown]
  - Neutrophil count decreased [Recovered/Resolved]

NARRATIVE: CASE EVENT DATE: 20220101
